FAERS Safety Report 7642828-0 (Version None)
Quarter: 2011Q3

REPORT INFORMATION
  Report Type: 
  Country: None (occurrence: None)
  Receive Date: 20110728
  Receipt Date: 20110725
  Transmission Date: 20111222
  Serious: Yes (Other)
  Sender: FDA-Public Use
  Company Number: US-AMGEN-USASP2011037762

PATIENT
  Age: 73 Year
  Sex: Male

DRUGS (8)
  1. TRAMADOL HCL [Concomitant]
  2. PERCOCET [Concomitant]
  3. IMMUNOGLOBULINS [Concomitant]
  4. NPLATE [Suspect]
     Indication: IDIOPATHIC THROMBOCYTOPENIC PURPURA
     Dosage: 0.25 A?G/KG, UNK
     Dates: start: 20081217, end: 20110406
  5. PREDNISONE [Concomitant]
     Dosage: 20 MG, TID
  6. SIMVASTATIN [Concomitant]
     Dosage: 40 MG, UNK
  7. HYDROXYZINE [Concomitant]
     Dosage: 25 MG, UNK
  8. LISINOPRIL [Concomitant]
     Dosage: 20 MG, QD

REACTIONS (1)
  - PLATELET COUNT DECREASED [None]
